FAERS Safety Report 9274815 (Version 3)
Quarter: 2013Q4

REPORT INFORMATION
  Report Type: Spontaneous
  Country: US (occurrence: US)
  Receive Date: 20130507
  Receipt Date: 20131219
  Transmission Date: 20140711
  Serious: Yes (Death, Hospitalization, Other)
  Sender: FDA-Public Use
  Company Number: US-B.I. PHARMACEUTICALS,INC./RIDGEFIELD-2013-BI-12340BP

PATIENT
  Age: 59 Year
  Sex: Female
  Weight: 68.04 kg

DRUGS (33)
  1. PRADAXA [Suspect]
     Indication: ATRIAL FIBRILLATION
     Dosage: 300 MG
     Dates: start: 201101, end: 20110428
  2. PRADAXA [Suspect]
     Indication: PERIPHERAL VASCULAR DISORDER
  3. FENTANYL [Concomitant]
     Dosage: 8.3333 MCG
  4. ZANAFLEX [Concomitant]
  5. METOPROLOL [Concomitant]
     Dosage: 25 MG
  6. REGLAN [Concomitant]
     Indication: NAUSEA
  7. REGLAN [Concomitant]
  8. FLUOXETINE [Concomitant]
     Dosage: 20 MG
  9. HYDROCODONE/TYLENOL [Concomitant]
  10. AMBIEN [Concomitant]
     Indication: INSOMNIA
  11. XANAX [Concomitant]
     Indication: ANXIETY
  12. TRAZODONE [Concomitant]
     Dosage: 200 MG
     Route: 048
  13. MAGNESIUM OXIDE [Concomitant]
     Dosage: 800 MG
  14. FERRO-SEQUELS [Concomitant]
     Dosage: 100 MG
  15. OMEGA 3 FATTY ACID [Concomitant]
  16. OS-CAL [Concomitant]
     Dosage: 1000 MG
  17. VITAMIN B COMPLEX [Concomitant]
  18. COLACE [Concomitant]
     Indication: CONSTIPATION
  19. VITAMIN D3 [Concomitant]
     Dosage: 1000 U
  20. BIOTIN [Concomitant]
     Dosage: 2.5 MG
  21. PROTONIX [Concomitant]
     Dosage: 40 MG
  22. MULTIVITAMIN [Concomitant]
  23. SIMVASTATIN [Concomitant]
     Dosage: 80 MG
     Route: 048
  24. NITROGLYCERIN [Concomitant]
     Route: 060
  25. AMOXICILLIN [Concomitant]
     Indication: DENTAL EXAMINATION
  26. TYLENOL [Concomitant]
  27. MILK OF MAGNESIA [Concomitant]
     Indication: CONSTIPATION
  28. GLYCERIN [Concomitant]
     Indication: CONSTIPATION
  29. MIRALAX [Concomitant]
     Indication: CONSTIPATION
  30. DRISDOL [Concomitant]
     Route: 048
  31. CARDIZEM [Concomitant]
     Dosage: 90 MG
     Route: 048
  32. CALCIUM 500 + VIT D [Concomitant]
     Route: 048
  33. NOVOLOG [Concomitant]
     Route: 058

REACTIONS (5)
  - Post procedural haemorrhage [Fatal]
  - Shock haemorrhagic [Fatal]
  - Disseminated intravascular coagulation [Fatal]
  - Haemorrhagic anaemia [Unknown]
  - Coagulopathy [Unknown]
